FAERS Safety Report 6435907-7 (Version None)
Quarter: 2009Q4

REPORT INFORMATION
  Report Type: 
  Country: None (occurrence: None)
  Receive Date: 20091111
  Receipt Date: 20091029
  Transmission Date: 20100525
  Serious: Yes (Other)
  Sender: FDA-Public Use
  Company Number: US-ELI_LILLY_AND_COMPANY-US200911000706

PATIENT
  Age: 29 Year
  Sex: Female

DRUGS (2)
  1. CYMBALTA [Suspect]
     Indication: DEPRESSION
     Dosage: 60 MG, UNK
     Dates: start: 20071001
  2. CYMBALTA [Suspect]
     Dosage: 30 MG, QOD

REACTIONS (2)
  - ARRHYTHMIA [None]
  - DRUG WITHDRAWAL SYNDROME [None]
